FAERS Safety Report 4864509-9 (Version None)
Quarter: 2005Q4

REPORT INFORMATION
  Report Type: 
  Country: None (occurrence: None)
  Receive Date: 20051222
  Receipt Date: 20051213
  Transmission Date: 20060501
  Serious: Yes (Hospitalization)
  Sender: FDA-Public Use
  Company Number: AU-ROCHE-428549

PATIENT
  Age: 36 Year
  Sex: Male

DRUGS (3)
  1. KETOROLAC TROMETHAMINE [Suspect]
     Indication: DRUG USE FOR UNKNOWN INDICATION
     Dosage: 1 DOSE UNSPECIFIED.
     Route: 065
     Dates: start: 20031003, end: 20031003
  2. INDOMETHACIN [Suspect]
     Indication: DRUG USE FOR UNKNOWN INDICATION
     Route: 065
     Dates: start: 20031006, end: 20031006
  3. DICLOXACILLIN SODIUM [Suspect]
     Indication: DRUG USE FOR UNKNOWN INDICATION
     Dosage: DOSE UNSPECIFIED DAILY.
     Route: 065
     Dates: start: 20030925, end: 20031004

REACTIONS (3)
  - BACK PAIN [None]
  - NEPHRITIS INTERSTITIAL [None]
  - RENAL FAILURE ACUTE [None]
